FAERS Safety Report 8112849-2 (Version None)
Quarter: 2012Q1

REPORT INFORMATION
  Report Type: 
  Country: None (occurrence: None)
  Receive Date: 20120203
  Receipt Date: 20120130
  Transmission Date: 20120608
  Serious: Yes (Other)
  Sender: FDA-Public Use
  Company Number: BR-ABBOTT-12P-020-0899840-00

PATIENT
  Sex: Female
  Weight: 68 kg

DRUGS (7)
  1. HUMIRA [Suspect]
     Route: 058
  2. RANITIDINE [Concomitant]
     Indication: PROPHYLAXIS
  3. CALCIUM CARBONATE [Concomitant]
     Indication: BONE DISORDER
  4. NORTRIPTYLINE + CYCLOBENZAPRINE + PARACETAMOL [Concomitant]
     Indication: MUSCULOSKELETAL PAIN
     Dosage: 10MG+2.5MG+300MG
     Route: 048
  5. PAROXETINE+PREDNISONE+CHLOROQUINE+MELOXICAM [Concomitant]
     Indication: MUSCULOSKELETAL PAIN
     Dosage: 10MG+5MG+7.5MG+50MG
     Route: 048
  6. HUMIRA [Suspect]
     Indication: RHEUMATOID ARTHRITIS
     Route: 058
     Dates: start: 20070101, end: 20111001
  7. RANITIDINE [Concomitant]
     Indication: GASTRIC DISORDER
     Dosage: 1 TABLET IN THE MORNING  AND 1 TABLET IN THE EVENING
     Route: 048

REACTIONS (6)
  - CARDIAC VALVE DISEASE [None]
  - ARTHRITIS [None]
  - DYSPNOEA [None]
  - TENDON RUPTURE [None]
  - MOBILITY DECREASED [None]
  - PULMONARY OEDEMA [None]
